FAERS Safety Report 10803164 (Version 1)
Quarter: 2015Q1

REPORT INFORMATION
  Report Type: Spontaneous
  Country: JP (occurrence: JP)
  Receive Date: 20150217
  Receipt Date: 20150217
  Transmission Date: 20150721
  Serious: Yes (Other)
  Sender: FDA-Public Use
  Company Number: JP-SHIRE-JP201501205

PATIENT
  Age: 69 Year
  Sex: Male

DRUGS (1)
  1. 405 (LANTHANUM CARBONATE) [Suspect]
     Active Substance: LANTHANUM CARBONATE
     Indication: HYPERPHOSPHATAEMIA
     Dosage: 1500 MG (250 MG X 6), UNKNOWN (PER DAY)
     Route: 048

REACTIONS (3)
  - Gastritis erosive [Unknown]
  - Biopsy intestine abnormal [Unknown]
  - Abdominal discomfort [Unknown]
